FAERS Safety Report 5776938-X (Version None)
Quarter: 2008Q2

REPORT INFORMATION
  Report Type: 
  Country: None (occurrence: None)
  Receive Date: 20080618
  Receipt Date: 20080613
  Transmission Date: 20081010
  Serious: Yes (Hospitalization)
  Sender: FDA-Public Use
  Company Number: B0524867A

PATIENT
  Age: 40 Year
  Sex: Male

DRUGS (6)
  1. ZEFFIX [Suspect]
     Dosage: 10MG WEEKLY
     Route: 048
     Dates: start: 19980101
  2. HEPSERA [Concomitant]
     Indication: DRUG USE FOR UNKNOWN INDICATION
     Route: 065
     Dates: start: 20080101
  3. KAYEXALATE [Concomitant]
     Indication: DRUG USE FOR UNKNOWN INDICATION
     Route: 065
  4. HELICIDINE [Concomitant]
     Indication: DRUG USE FOR UNKNOWN INDICATION
     Route: 065
  5. TRANXENE [Concomitant]
     Indication: DRUG USE FOR UNKNOWN INDICATION
     Route: 065
  6. CHELATION THERAPY [Concomitant]
     Indication: DRUG USE FOR UNKNOWN INDICATION
     Route: 065

REACTIONS (3)
  - ELECTROMYOGRAM ABNORMAL [None]
  - GUILLAIN-BARRE SYNDROME [None]
  - NEUROPATHY PERIPHERAL [None]
